FAERS Safety Report 14760598 (Version 3)
Quarter: 2019Q1

REPORT INFORMATION
  Report Type: Spontaneous
  Country: US (occurrence: US)
  Receive Date: 20180414
  Receipt Date: 20190124
  Transmission Date: 20190417
  Serious: Yes (Hospitalization, Other)
  Sender: FDA-Public Use
  Company Number: US-ASTRAZENECA-2018SE44383

PATIENT
  Age: 16489 Day
  Sex: Female
  Weight: 52.2 kg

DRUGS (83)
  1. CYMBALTA [Concomitant]
     Active Substance: DULOXETINE HYDROCHLORIDE
     Indication: DEPRESSION
  2. KEFTAB [Concomitant]
     Active Substance: CEPHALEXIN HYDROCHLORIDE
     Dates: start: 2000
  3. TORSEMIDE. [Concomitant]
     Active Substance: TORSEMIDE
     Indication: FLUID RETENTION
     Dosage: 10.0MG UNKNOWN
     Route: 048
     Dates: start: 20021230
  4. TRAZODONE [Concomitant]
     Active Substance: TRAZODONE HYDROCHLORIDE
     Dates: start: 2000, end: 2012
  5. TRAZODONE [Concomitant]
     Active Substance: TRAZODONE HYDROCHLORIDE
     Dosage: 50.0MG UNKNOWN
     Dates: start: 20000321
  6. ZOLOFT [Concomitant]
     Active Substance: SERTRALINE HYDROCHLORIDE
     Dates: start: 2002
  7. OXYCODONE HYDROCHLORIDE. [Concomitant]
     Active Substance: OXYCODONE HYDROCHLORIDE
     Dosage: 1 EVERY 4 - 6 HOURS AS NEEDED
  8. PROGESTERONE. [Concomitant]
     Active Substance: PROGESTERONE
     Dosage: 100.0MG ONCE/SINGLE ADMINISTRATION
  9. AMLODIPINE [Concomitant]
     Active Substance: AMLODIPINE BESYLATE
  10. GLYCOLAX [Concomitant]
     Active Substance: POLYETHYLENE GLYCOL 3350
     Dosage: DAILY
  11. FLEXERIL [Concomitant]
     Active Substance: CYCLOBENZAPRINE HYDROCHLORIDE
     Dosage: 5.0MG UNKNOWN
  12. NEXIUM [Suspect]
     Active Substance: ESOMEPRAZOLE MAGNESIUM
     Indication: GASTROOESOPHAGEAL REFLUX DISEASE
     Route: 048
     Dates: start: 20071203
  13. DEPAKOTE [Concomitant]
     Active Substance: DIVALPROEX SODIUM
     Indication: HEADACHE
  14. DICLOFENAC SODIUM. [Concomitant]
     Active Substance: DICLOFENAC SODIUM
  15. GAVISCON OTC [Concomitant]
     Dates: start: 2017
  16. ZANTAC [Concomitant]
     Active Substance: RANITIDINE HYDROCHLORIDE
     Dates: start: 2002, end: 2007
  17. COMBIVENT [Concomitant]
     Active Substance: ALBUTEROL SULFATE\IPRATROPIUM BROMIDE
  18. NAPROXEN. [Concomitant]
     Active Substance: NAPROXEN
     Indication: DYSPNOEA
     Route: 048
     Dates: start: 20140816
  19. VALIUM [Concomitant]
     Active Substance: DIAZEPAM
     Indication: ANXIETY
     Route: 048
     Dates: start: 20121119
  20. GEODON [Concomitant]
     Active Substance: ZIPRASIDONE HYDROCHLORIDE\ZIPRASIDONE MESYLATE
     Dates: start: 2009, end: 2012
  21. GUAIFENESIN. [Concomitant]
     Active Substance: GUAIFENESIN
     Indication: SECRETION DISCHARGE
     Dates: start: 2001
  22. PROVIGIL [Concomitant]
     Active Substance: MODAFINIL
     Dosage: UNKNOWN
     Dates: start: 2012, end: 2014
  23. POTASSIUM CHLORIDE. [Concomitant]
     Active Substance: POTASSIUM CHLORIDE
     Indication: HYPOKALAEMIA
     Dates: start: 2006
  24. MELOXICAM. [Concomitant]
     Active Substance: MELOXICAM
     Indication: HYPERVENTILATION
     Route: 048
     Dates: start: 20140816
  25. PROZAC [Concomitant]
     Active Substance: FLUOXETINE HYDROCHLORIDE
     Route: 048
     Dates: start: 19990727
  26. NEXIUM [Suspect]
     Active Substance: ESOMEPRAZOLE MAGNESIUM
     Indication: GASTROOESOPHAGEAL REFLUX DISEASE
     Route: 048
     Dates: start: 1990, end: 2013
  27. DIFLUCAN [Concomitant]
     Active Substance: FLUCONAZOLE
     Dates: start: 2003
  28. IBUPROFEN. [Concomitant]
     Active Substance: IBUPROFEN
     Dates: start: 2005, end: 2012
  29. PROVIGIL [Concomitant]
     Active Substance: MODAFINIL
     Dosage: 200.0MG UNKNOWN
  30. NYSTATIN. [Concomitant]
     Active Substance: NYSTATIN
     Route: 048
     Dates: start: 2002, end: 2013
  31. TOPAMAX [Concomitant]
     Active Substance: TOPIRAMATE
     Dates: start: 2002, end: 2003
  32. TRAMADOL. [Concomitant]
     Active Substance: TRAMADOL
     Indication: PAIN
     Dates: start: 2002, end: 2010
  33. ZYRTEC [Concomitant]
     Active Substance: CETIRIZINE HYDROCHLORIDE
     Dosage: 10.0MG ONCE/SINGLE ADMINISTRATION
  34. PREVACID [Suspect]
     Active Substance: LANSOPRAZOLE
     Indication: GASTROOESOPHAGEAL REFLUX DISEASE
     Route: 065
     Dates: start: 20070412, end: 20070906
  35. ALLEGRA [Concomitant]
     Active Substance: FEXOFENADINE HYDROCHLORIDE
     Indication: HYPERSENSITIVITY
  36. AMBIEN [Concomitant]
     Active Substance: ZOLPIDEM TARTRATE
     Indication: INSOMNIA
     Dates: start: 2008
  37. IMITREX [Concomitant]
     Active Substance: SUMATRIPTAN SUCCINATE
     Indication: MIGRAINE
  38. PHENYLPROPANOLAMINE [Concomitant]
     Active Substance: PHENYLPROPANOLAMINE
     Dates: start: 2000
  39. PRISTIQ EXTENDED-RELEASE [Concomitant]
     Active Substance: DESVENLAFAXINE SUCCINATE
     Dates: start: 2008, end: 2009
  40. SKELAXIN [Concomitant]
     Active Substance: METAXALONE
     Indication: MUSCLE RELAXANT THERAPY
     Dates: start: 2002, end: 2004
  41. VITAMIN C [Concomitant]
     Active Substance: ASCORBIC ACID
     Indication: IMMUNE SYSTEM DISORDER
     Dates: start: 2000
  42. PEPCID AC [Concomitant]
     Active Substance: FAMOTIDINE
     Dates: start: 2002, end: 2007
  43. ESTRADIOL. [Concomitant]
     Active Substance: ESTRADIOL
     Dosage: ONCE/SINGLE ADMINISTRATION
  44. AMOXICILLIN. [Concomitant]
     Active Substance: AMOXICILLIN
     Route: 048
     Dates: start: 20070822
  45. NEXIUM [Suspect]
     Active Substance: ESOMEPRAZOLE MAGNESIUM
     Indication: GASTROOESOPHAGEAL REFLUX DISEASE
     Route: 048
     Dates: start: 20130225
  46. NEXIUM [Suspect]
     Active Substance: ESOMEPRAZOLE MAGNESIUM
     Indication: GASTROOESOPHAGEAL REFLUX DISEASE
     Route: 048
     Dates: start: 20081021
  47. PRILOSEC [Suspect]
     Active Substance: OMEPRAZOLE MAGNESIUM
     Indication: GASTROOESOPHAGEAL REFLUX DISEASE
     Route: 048
     Dates: start: 2015
  48. PROTONIX [Suspect]
     Active Substance: PANTOPRAZOLE SODIUM
     Indication: GASTROOESOPHAGEAL REFLUX DISEASE
     Route: 065
     Dates: start: 1990, end: 2013
  49. PROTONIX [Suspect]
     Active Substance: PANTOPRAZOLE SODIUM
     Indication: GASTROOESOPHAGEAL REFLUX DISEASE
     Route: 065
     Dates: start: 20020326, end: 20020708
  50. ABILIFY [Concomitant]
     Active Substance: ARIPIPRAZOLE
     Indication: BIPOLAR DISORDER
     Dates: start: 2009
  51. BUPROPION. [Concomitant]
     Active Substance: BUPROPION
     Dates: start: 2008
  52. FENTANYL. [Concomitant]
     Active Substance: FENTANYL
  53. GLUCOPHAGE [Concomitant]
     Active Substance: METFORMIN HYDROCHLORIDE
     Indication: DIABETES MELLITUS
     Dates: start: 2002, end: 2003
  54. HYDROCODONE BITARTRATE AND ACETAMINOPHEN [Concomitant]
     Active Substance: ACETAMINOPHEN\HYDROCODONE BITARTRATE
     Dosage: 7.5-500 MG
     Route: 048
     Dates: start: 20070915
  55. PROVIGIL [Concomitant]
     Active Substance: MODAFINIL
     Route: 048
     Dates: start: 2008, end: 2012
  56. TOPAMAX [Concomitant]
     Active Substance: TOPIRAMATE
     Dates: start: 2009, end: 2010
  57. TORSEMIDE. [Concomitant]
     Active Substance: TORSEMIDE
     Indication: FLUID RETENTION
     Dates: start: 2002, end: 2004
  58. VITAMIN D3 [Concomitant]
     Active Substance: CHOLECALCIFEROL
     Indication: BONE DISORDER
     Dates: start: 2000
  59. RANITIDINE. [Concomitant]
     Active Substance: RANITIDINE
     Dates: start: 2002, end: 2007
  60. PROAIR HFA [Concomitant]
     Active Substance: ALBUTEROL SULFATE
  61. NEXIUM [Suspect]
     Active Substance: ESOMEPRAZOLE MAGNESIUM
     Indication: GASTROOESOPHAGEAL REFLUX DISEASE
     Route: 048
     Dates: start: 20071012, end: 2014
  62. PRILOSEC [Suspect]
     Active Substance: OMEPRAZOLE MAGNESIUM
     Indication: GASTROOESOPHAGEAL REFLUX DISEASE
     Dosage: GENERIC
     Route: 065
     Dates: start: 2015
  63. PREVACID [Suspect]
     Active Substance: LANSOPRAZOLE
     Indication: GASTROOESOPHAGEAL REFLUX DISEASE
     Route: 065
     Dates: start: 1990, end: 2013
  64. CEFUROXIME AXETIL. [Concomitant]
     Active Substance: CEFUROXIME AXETIL
  65. CELEBREX [Concomitant]
     Active Substance: CELECOXIB
  66. ZIPRASIDONE. [Concomitant]
     Active Substance: ZIPRASIDONE
     Indication: SCHIZOPHRENIA
     Dates: start: 2012
  67. VITAMIN B COMPLEX [Concomitant]
     Active Substance: CYANOCOBALAMIN\DEXPANTHENOL\NIACINAMIDE\PYRIDOXINE HYDROCHLORIDE\RIBOFLAVIN 5^-PHOSPHATE SODIUM\THIAMINE HYDROCHLORIDE\VITAMIN B COMPLEX
     Indication: AFFECTIVE DISORDER
     Dates: start: 2000
  68. ATORVASTATIN [Concomitant]
     Active Substance: ATORVASTATIN
     Indication: BLOOD CHOLESTEROL
     Dates: start: 2015
  69. ALPRAZOLAM. [Concomitant]
     Active Substance: ALPRAZOLAM
     Indication: ANXIETY
     Dosage: 0.5MG UNKNOWN
     Dates: start: 20020618
  70. BENZONATATE. [Concomitant]
     Active Substance: BENZONATATE
     Indication: COUGH
  71. CEFDINIR. [Concomitant]
     Active Substance: CEFDINIR
  72. FLUOXETINE [Concomitant]
     Active Substance: FLUOXETINE HYDROCHLORIDE
     Dates: start: 2008
  73. HYDROCODONE BITARTRATE AND ACETAMINOPHEN [Concomitant]
     Active Substance: ACETAMINOPHEN\HYDROCODONE BITARTRATE
     Dosage: DAILY
     Dates: start: 2000, end: 2013
  74. LEVAQUIN [Concomitant]
     Active Substance: LEVOFLOXACIN
     Route: 048
     Dates: start: 2001
  75. PAROXETINE. [Concomitant]
     Active Substance: PAROXETINE
     Dates: start: 2007
  76. PREDNISONE. [Concomitant]
     Active Substance: PREDNISONE
     Indication: INFLAMMATION
     Route: 048
     Dates: start: 2002, end: 2013
  77. TRIAMTERENE/HCTZ/MAXZIDE [Concomitant]
     Indication: OEDEMA
     Route: 048
     Dates: start: 2000, end: 2013
  78. TAGAMET HB (OTC) [Concomitant]
     Dates: start: 2002, end: 2007
  79. POTASSIUM GLUCONATE [Concomitant]
     Active Substance: POTASSIUM GLUCONATE
     Dosage: ONCE A DAY
  80. KLONOPIN [Concomitant]
     Active Substance: CLONAZEPAM
     Dosage: 0.5MG UNKNOWN
  81. NAPROXEN. [Concomitant]
     Active Substance: NAPROXEN
     Indication: PALPITATIONS
     Route: 048
     Dates: start: 20140816
  82. AUGMENTIN [Concomitant]
     Active Substance: AMOXICILLIN\CLAVULANATE POTASSIUM
     Dosage: 875/125MG
     Route: 048
     Dates: start: 20180710
  83. DOXYCYCLINE HYCLATE. [Concomitant]
     Active Substance: DOXYCYCLINE HYCLATE
     Route: 048
     Dates: start: 20111007

REACTIONS (4)
  - Renal failure [Unknown]
  - Chronic kidney disease [Not Recovered/Not Resolved]
  - Acute kidney injury [Not Recovered/Not Resolved]
  - Tubulointerstitial nephritis [Unknown]
